FAERS Safety Report 23753395 (Version 1)
Quarter: 2024Q2

REPORT INFORMATION
  Report Type: Spontaneous
  Country: CN (occurrence: CN)
  Receive Date: 20240417
  Receipt Date: 20240417
  Transmission Date: 20240715
  Serious: Yes (Hospitalization)
  Sender: FDA-Public Use
  Company Number: CN-PFIZER INC-PV202400050101

PATIENT
  Age: 37 Year
  Sex: Female
  Weight: 68.5 kg

DRUGS (2)
  1. EPIRUBICIN HYDROCHLORIDE [Suspect]
     Active Substance: EPIRUBICIN HYDROCHLORIDE
     Indication: Breast cancer
     Dosage: 150 MG, 1X/DAY
     Route: 041
     Dates: start: 20240411, end: 20240411
  2. CYCLOPHOSPHAMIDE [Suspect]
     Active Substance: CYCLOPHOSPHAMIDE
     Indication: Breast cancer
     Dosage: 1 G, 1X/DAY
     Route: 042
     Dates: start: 20240411, end: 20240411

REACTIONS (4)
  - Liver injury [Recovering/Resolving]
  - Nausea [Recovering/Resolving]
  - Gastrooesophageal reflux disease [Recovering/Resolving]
  - Gastrointestinal disorder [Recovering/Resolving]

NARRATIVE: CASE EVENT DATE: 20240412
